FAERS Safety Report 9969100 (Version 1)
Quarter: 2014Q1

REPORT INFORMATION
  Report Type: Report from Study
  Country: US (occurrence: US)
  Receive Date: 20140306
  Receipt Date: 20140306
  Transmission Date: 20141002
  Serious: No
  Sender: FDA-Public Use
  Company Number: US-ABBVIE-13P-163-1144161-00

PATIENT
  Age: 57 Year
  Sex: Female

DRUGS (17)
  1. HUMIRA [Suspect]
     Indication: CROHN^S DISEASE
     Dosage: STARTING DOSE
     Dates: start: 20130906, end: 20130906
  2. PREDNISONE [Concomitant]
     Indication: CROHN^S DISEASE
     Dosage: 25 MG DAILY
  3. LABETALOL [Concomitant]
     Indication: HYPERTENSION
  4. CYMBALTA [Concomitant]
     Indication: DEPRESSION
     Dosage: 90 MG DAILY
  5. CYMBALTA [Concomitant]
     Indication: PAIN
  6. FLORASTOR [Concomitant]
     Indication: PROPHYLAXIS
     Dosage: 1000 MG DAILY
  7. PRILOSEC [Concomitant]
     Indication: DYSPEPSIA
     Dosage: 20.6 MG DAILY
  8. CRESTOR [Concomitant]
     Indication: BLOOD CHOLESTEROL INCREASED
     Dosage: 10 MG DAILY
  9. FUROSEMIDE [Concomitant]
     Indication: FLUID RETENTION
     Dosage: 20 MG DAILY
  10. K-DUR [Concomitant]
     Indication: PRODUCT USED FOR UNKNOWN INDICATION
     Dosage: 20 MEQ DAILY
  11. CLONAZEPAM [Concomitant]
     Indication: ANXIETY
     Dosage: 0.5 MG DAILY
  12. AMBIEN [Concomitant]
     Indication: INSOMNIA
     Dosage: 5 MG AT HOUR OF SLEEP
  13. AMLODIPINE [Concomitant]
     Indication: HYPERTENSION
     Dosage: 5 MG DAILY
  14. VITAMIN B [Concomitant]
     Indication: PRODUCT USED FOR UNKNOWN INDICATION
  15. VITAMIN D [Concomitant]
     Indication: PRODUCT USED FOR UNKNOWN INDICATION
  16. COQ10 [Concomitant]
     Indication: PRODUCT USED FOR UNKNOWN INDICATION
  17. OMEGA 3 [Concomitant]
     Indication: PRODUCT USED FOR UNKNOWN INDICATION

REACTIONS (3)
  - Device malfunction [Recovered/Resolved]
  - Device malfunction [Recovered/Resolved]
  - Injection site pain [Recovered/Resolved]
